FAERS Safety Report 23457164 (Version 3)
Quarter: 2024Q1

REPORT INFORMATION
  Report Type: Other
  Country: KR (occurrence: None)
  Receive Date: 20240130
  Receipt Date: 20240315
  Transmission Date: 20240410
  Serious: Yes (Hospitalization)
  Sender: FDA-Public Use
  Company Number: KR-ROCHE-3499625

PATIENT
  Age: 73 Year
  Sex: Female
  Weight: 52.8 kg

DRUGS (13)
  1. ADO-TRASTUZUMAB EMTANSINE [Suspect]
     Active Substance: ADO-TRASTUZUMAB EMTANSINE
     Indication: Bladder cancer
     Route: 042
     Dates: start: 20240103, end: 20240103
  2. ADO-TRASTUZUMAB EMTANSINE [Suspect]
     Active Substance: ADO-TRASTUZUMAB EMTANSINE
     Dosage: LAST DOSE RECEIVED ON: 02/FEB/2024
     Route: 042
     Dates: start: 20240202, end: 20240202
  3. ADO-TRASTUZUMAB EMTANSINE [Suspect]
     Active Substance: ADO-TRASTUZUMAB EMTANSINE
     Route: 042
     Dates: start: 20230223, end: 20230223
  4. ADO-TRASTUZUMAB EMTANSINE [Suspect]
     Active Substance: ADO-TRASTUZUMAB EMTANSINE
     Route: 042
     Dates: start: 20240311, end: 20240311
  5. LEVOTENSION [Concomitant]
     Indication: Neoplasm
     Route: 048
     Dates: start: 20030101, end: 20240125
  6. DIQVAN [Concomitant]
     Indication: Neoplasm
     Route: 048
     Dates: start: 20030101, end: 20240125
  7. ASPIRIN [Concomitant]
     Active Substance: ASPIRIN
     Route: 048
     Dates: start: 20030101, end: 20240125
  8. ATORVASTATIN CALCIUM [Concomitant]
     Active Substance: ATORVASTATIN CALCIUM
     Route: 048
  9. XYZAL [Concomitant]
     Active Substance: LEVOCETIRIZINE DIHYDROCHLORIDE
     Route: 048
     Dates: start: 20231023, end: 20240125
  10. MAGNESIUM OXIDE [Concomitant]
     Active Substance: MAGNESIUM OXIDE
     Route: 048
     Dates: start: 20240103, end: 20240125
  11. INVANZ [Concomitant]
     Active Substance: ERTAPENEM SODIUM
     Route: 042
     Dates: start: 20240124, end: 20240125
  12. SETOPEN [Concomitant]
     Route: 048
     Dates: start: 20240103, end: 20240125
  13. CHLORPHENIRAMINE MALEATE [Concomitant]
     Active Substance: CHLORPHENIRAMINE MALEATE
     Dosage: 2 ML
     Route: 042
     Dates: start: 20240103, end: 20240125

REACTIONS (2)
  - Urinary tract infection [Recovering/Resolving]
  - Pyrexia [Recovered/Resolved]

NARRATIVE: CASE EVENT DATE: 20240123
